FAERS Safety Report 24106033 (Version 1)
Quarter: 2024Q3

REPORT INFORMATION
  Report Type: Spontaneous
  Country: FR (occurrence: None)
  Receive Date: 20240717
  Receipt Date: 20240717
  Transmission Date: 20241016
  Serious: Yes (Other)
  Sender: ASTRAZENECA
  Company Number: 2024A160899

PATIENT
  Sex: Female
  Weight: 74 kg

DRUGS (1)
  1. TAGRISSO [Suspect]
     Active Substance: OSIMERTINIB
     Indication: Lung neoplasm malignant
     Route: 048

REACTIONS (7)
  - Nodule [Unknown]
  - Fatigue [Unknown]
  - Anxiety [Unknown]
  - Dry skin [Unknown]
  - Pruritus [Unknown]
  - Onycholysis [Unknown]
  - Dyspnoea exertional [Unknown]
